FAERS Safety Report 8216231-9 (Version None)
Quarter: 2012Q1

REPORT INFORMATION
  Report Type: 
  Country: None (occurrence: None)
  Receive Date: 20120316
  Receipt Date: 20120313
  Transmission Date: 20120608
  Serious: Yes (Death, Life-Threatening, Other)
  Sender: FDA-Public Use
  Company Number: US-ROXANE LABORATORIES, INC.-2012-RO-00853RO

PATIENT
  Age: 40 Year
  Sex: Male

DRUGS (3)
  1. METHADONE HCL [Suspect]
     Route: 055
  2. ALCOHOL [Suspect]
  3. CANNABIS [Suspect]

REACTIONS (6)
  - RHABDOMYOLYSIS [None]
  - BRAIN OEDEMA [None]
  - MULTI-ORGAN FAILURE [None]
  - TOXICITY TO VARIOUS AGENTS [None]
  - DISSEMINATED INTRAVASCULAR COAGULATION [None]
  - CARDIAC ARREST [None]
